FAERS Safety Report 7759335-7 (Version None)
Quarter: 2011Q3

REPORT INFORMATION
  Report Type: 
  Country: None (occurrence: None)
  Receive Date: 20110919
  Receipt Date: 20110906
  Transmission Date: 20111222
  Serious: Yes (Other)
  Sender: FDA-Public Use
  Company Number: CR-PFIZER INC-2011202001

PATIENT
  Age: 6 Year
  Sex: Female

DRUGS (1)
  1. CLINDAMYCIN HCL [Suspect]
     Indication: PHARYNGITIS
     Dosage: 110 MG, 3X/DAY
     Route: 048
     Dates: start: 20110824

REACTIONS (5)
  - PRODUCT ODOUR ABNORMAL [None]
  - SOMNOLENCE [None]
  - VERTIGO [None]
  - SYNCOPE [None]
  - INSOMNIA [None]
